FAERS Safety Report 6345965-6 (Version None)
Quarter: 2009Q3

REPORT INFORMATION
  Report Type: 
  Country: None (occurrence: None)
  Receive Date: 20090909
  Receipt Date: 20090828
  Transmission Date: 20100115
  Serious: Yes (Other)
  Sender: FDA-Public Use
  Company Number: JP-NOVOPROD-291111

PATIENT
  Age: 85 Year
  Sex: Male

DRUGS (4)
  1. LEVEMIR CHU PENFILL [Suspect]
     Indication: DRUG USE FOR UNKNOWN INDICATION
  2. NOVORAPID CHU FLEXPEN [Suspect]
     Indication: DRUG USE FOR UNKNOWN INDICATION
  3. AMARYL [Suspect]
     Indication: DRUG USE FOR UNKNOWN INDICATION
  4. EPADEL [Suspect]
     Indication: DRUG USE FOR UNKNOWN INDICATION

REACTIONS (1)
  - GRANULOCYTE COUNT DECREASED [None]
